FAERS Safety Report 7215579-4 (Version None)
Quarter: 2011Q1

REPORT INFORMATION
  Report Type: 
  Country: None (occurrence: None)
  Receive Date: 20110107
  Receipt Date: 20110104
  Transmission Date: 20110831
  Serious: Yes (Other)
  Sender: FDA-Public Use
  Company Number: BR-ROCHE-751573

PATIENT
  Sex: Female
  Weight: 83 kg

DRUGS (4)
  1. HIXIZINE [Concomitant]
     Dosage: 1 TABLET DAILY
     Dates: start: 20101101
  2. ROACUTAN [Suspect]
     Indication: ACNE
     Route: 048
  3. SELENE [Concomitant]
     Indication: CONTRACEPTION
     Dosage: 1 TABLET DAILY
     Dates: start: 20080101
  4. ROACUTAN [Suspect]
     Route: 048
     Dates: start: 20100701

REACTIONS (3)
  - LIP DRY [None]
  - WEIGHT INCREASED [None]
  - THYROID DISORDER [None]
